FAERS Safety Report 15562659 (Version 2)
Quarter: 2018Q4

REPORT INFORMATION
  Report Type: Report from Study
  Country: US (occurrence: US)
  Receive Date: 20181029
  Receipt Date: 20181114
  Transmission Date: 20190205
  Serious: Yes (Hospitalization)
  Sender: FDA-Public Use
  Company Number: US-EISAI MEDICAL RESEARCH-EC-2018-046835

PATIENT
  Age: 85 Year
  Sex: Male
  Weight: 76.7 kg

DRUGS (4)
  1. LENVATINIB [Suspect]
     Active Substance: LENVATINIB
     Dosage: BLINDED DOSAGE
     Route: 048
     Dates: start: 20180102, end: 20180131
  2. LENVATINIB [Suspect]
     Active Substance: LENVATINIB
     Dosage: BLINDED DOSAGE
     Route: 048
     Dates: start: 20181101
  3. LENVATINIB [Suspect]
     Active Substance: LENVATINIB
     Dosage: BLINDED DOSAGE (REDUCED)
     Route: 048
     Dates: start: 20180219, end: 201810
  4. LENVATINIB [Suspect]
     Active Substance: LENVATINIB
     Indication: PAPILLARY THYROID CANCER
     Dosage: BLINDED DOSAGE
     Route: 048
     Dates: start: 20171122, end: 20171206

REACTIONS (2)
  - Atrial fibrillation [Not Recovered/Not Resolved]
  - Syncope [Recovered/Resolved]

NARRATIVE: CASE EVENT DATE: 20181021
